FAERS Safety Report 6266385-9 (Version None)
Quarter: 2009Q3

REPORT INFORMATION
  Report Type: 
  Country: None (occurrence: None)
  Receive Date: 20090709
  Receipt Date: 20090701
  Transmission Date: 20100115
  Serious: Yes (Life-Threatening, Hospitalization, Disabling)
  Sender: FDA-Public Use
  Company Number: 09US002301

PATIENT
  Sex: Female

DRUGS (1)
  1. SODIUM PHOSPHATE UNFLAVORED SALINE LAXATIVE 660 MG/ML 806 (SODIUM PHOS [Suspect]
     Indication: COLONOSCOPY
     Dosage: TWO 1.5 OUNCE DOSES, ORAL
     Route: 048
     Dates: start: 20060720

REACTIONS (2)
  - NEPHROCALCINOSIS [None]
  - RENAL FAILURE CHRONIC [None]
